FAERS Safety Report 9007328 (Version 1)
Quarter: 2013Q1

REPORT INFORMATION
  Report Type: Spontaneous
  Country: GB (occurrence: GB)
  Receive Date: 20130110
  Receipt Date: 20130110
  Transmission Date: 20140127
  Serious: Yes (Other)
  Sender: FDA-Public Use
  Company Number: GB-TEVA-378931ISR

PATIENT
  Sex: Female

DRUGS (1)
  1. CLARITHROMYCIN [Suspect]
     Dosage: 1000 MILLIGRAM DAILY; TAKEN 6 TABLETS

REACTIONS (4)
  - Anxiety [Unknown]
  - Myalgia [Unknown]
  - Nightmare [Unknown]
  - Insomnia [Unknown]
